FAERS Safety Report 8115386-4 (Version None)
Quarter: 2012Q1

REPORT INFORMATION
  Report Type: 
  Country: None (occurrence: None)
  Receive Date: 20120206
  Receipt Date: 20120206
  Transmission Date: 20120608
  Serious: Yes (Other)
  Sender: FDA-Public Use
  Company Number: None

PATIENT
  Age: 35 Year
  Sex: Male
  Weight: 14.968 kg

DRUGS (1)
  1. AMOXICILLIN [Suspect]
     Indication: EAR INFECTION
     Dosage: 8ML
     Route: 048
     Dates: start: 20120129, end: 20120202

REACTIONS (2)
  - ARTHRALGIA [None]
  - RASH [None]
